FAERS Safety Report 21963046 (Version 1)
Quarter: 2023Q1

REPORT INFORMATION
  Report Type: Spontaneous
  Country: US (occurrence: None)
  Receive Date: 20230206
  Receipt Date: 20230206
  Transmission Date: 20230418
  Serious: No
  Sender: FDA-Public Use
  Company Number: None

PATIENT

DRUGS (3)
  1. DEVICE [Suspect]
     Active Substance: DEVICE
     Indication: Immune thrombocytopenia
     Dosage: 11 GM EVERY 2 WEEKS SQ
     Route: 058
     Dates: start: 202111
  2. DEVICE [Suspect]
     Active Substance: DEVICE
     Indication: Congenital hypogammaglobulinaemia
  3. HIZENTRA [Suspect]
     Active Substance: HUMAN IMMUNOGLOBULIN G

REACTIONS (1)
  - Device malfunction [None]
